FAERS Safety Report 8140621-6 (Version None)
Quarter: 2012Q1

REPORT INFORMATION
  Report Type: 
  Country: None (occurrence: None)
  Receive Date: 20120216
  Receipt Date: 20120206
  Transmission Date: 20120608
  Serious: Yes (Other)
  Sender: FDA-Public Use
  Company Number: CA-JNJFOC-20120203945

PATIENT
  Sex: Female
  Weight: 76 kg

DRUGS (9)
  1. CALCIUM [Concomitant]
     Route: 065
  2. VITAMIN B COMPLEX CAP [Concomitant]
     Route: 065
  3. REMICADE [Suspect]
     Indication: CROHN'S DISEASE
     Route: 042
  4. REMICADE [Suspect]
     Route: 042
     Dates: start: 20100608, end: 20111222
  5. EFFEXOR [Concomitant]
     Route: 065
  6. VITAMIN D [Concomitant]
     Route: 065
  7. ONE A DAY MULTIVITAMIN [Concomitant]
     Route: 048
  8. SYNTHROID [Concomitant]
     Route: 048
  9. GLUCOSAMINE + CHONDROITIN COMBO [Concomitant]
     Route: 065

REACTIONS (5)
  - INFUSION RELATED REACTION [None]
  - FLUSHING [None]
  - PARAESTHESIA ORAL [None]
  - ASTHENIA [None]
  - NAUSEA [None]
